FAERS Safety Report 18213174 (Version 2)
Quarter: 2020Q3

REPORT INFORMATION
  Report Type: Spontaneous
  Country: FR (occurrence: FR)
  Receive Date: 20200831
  Receipt Date: 20200901
  Transmission Date: 20201103
  Serious: Yes (Disabling)
  Sender: FDA-Public Use
  Company Number: NVSC2020FR234547

PATIENT
  Age: 32 Year
  Sex: Female
  Weight: 93 kg

DRUGS (4)
  1. SERESTA [Interacting]
     Active Substance: OXAZEPAM
     Indication: PRODUCT USED FOR UNKNOWN INDICATION
     Dosage: 20 MG, QD
     Route: 065
  2. LOXAPAC [Interacting]
     Active Substance: LOXAPINE
     Dosage: 25 MG, QD
     Route: 048
     Dates: start: 20191126
  3. OLANZAPINE. [Suspect]
     Active Substance: OLANZAPINE
     Indication: PRODUCT USED FOR UNKNOWN INDICATION
     Dosage: 15 MG, QD
     Route: 065
     Dates: start: 20160601
  4. LOXAPAC [Interacting]
     Active Substance: LOXAPINE
     Indication: SCHIZOPHRENIA
     Dosage: 50 MG, QD
     Route: 048
     Dates: start: 20180301, end: 20191125

REACTIONS (3)
  - Personality disorder [Not Recovered/Not Resolved]
  - Sedation [Recovering/Resolving]
  - Drug interaction [Unknown]

NARRATIVE: CASE EVENT DATE: 20190801
